FAERS Safety Report 8987702 (Version 1)
Quarter: 2012Q4

REPORT INFORMATION
  Report Type: 
  Country: US (occurrence: US)
  Receive Date: 20121227
  Receipt Date: 20121227
  Transmission Date: 20130627
  Serious: Yes (Other)
  Sender: FDA-Public Use
  Company Number: PHHY2012US119939

PATIENT
  Age: 55 Year
  Sex: Male

DRUGS (3)
  1. 5-FLUOROURACIL [Suspect]
     Indication: ANAL CANCER STAGE III
     Dosage: 1000 mg/m2
     Dates: start: 200601
  2. CISPLATIN [Concomitant]
     Indication: ANAL CANCER STAGE III
     Dosage: 60 mg/m2
     Dates: start: 200601
  3. CISPLATIN [Concomitant]
     Dosage: 20 mg/m2, on days 8 and 15
     Dates: end: 200603

REACTIONS (4)
  - Arteriospasm coronary [Recovered/Resolved]
  - Chest pain [Recovered/Resolved]
  - Myocardial ischaemia [Recovered/Resolved]
  - Electrocardiogram T wave abnormal [Recovered/Resolved]
